FAERS Safety Report 7430264-1 (Version None)
Quarter: 2011Q2

REPORT INFORMATION
  Report Type: 
  Country: None (occurrence: None)
  Receive Date: 20110421
  Receipt Date: 20110414
  Transmission Date: 20111010
  Serious: Yes (Hospitalization, Other)
  Sender: FDA-Public Use
  Company Number: US-PURDUE-USA-2011-0066990

PATIENT
  Age: 50 Year
  Sex: Female
  Weight: 115.19 kg

DRUGS (12)
  1. COUMADIN [Concomitant]
     Indication: PRODUCT USED FOR UNKNOWN INDICATION
     Dosage: 7.5 MG, DAILY
  2. LORTAB [Concomitant]
     Indication: BREAKTHROUGH PAIN
     Dosage: 15 MG, Q4H
  3. LYRICA [Concomitant]
     Indication: PRODUCT USED FOR UNKNOWN INDICATION
     Dosage: 100 MG, TID
  4. LOMOTIL [Concomitant]
     Indication: DIARRHOEA
     Dosage: 0.25 MG, UNK
  5. NORVASC [Concomitant]
     Indication: PRODUCT USED FOR UNKNOWN INDICATION
     Dosage: 10 MG, DAILY
  6. CYMBALTA [Concomitant]
     Indication: PRODUCT USED FOR UNKNOWN INDICATION
     Dosage: 60 MG, BID
  7. CATAPRES                           /00171101/ [Concomitant]
     Indication: PRODUCT USED FOR UNKNOWN INDICATION
     Dosage: UNK UNK, WEEKLY
  8. TOPROL-XL [Concomitant]
     Indication: BLOOD PRESSURE
     Dosage: UNK, PRN
  9. OXYCONTIN TABLETS [Suspect]
     Indication: PAIN
     Dosage: 320 MG, TID
  10. ZANAFLEX [Concomitant]
     Indication: PRODUCT USED FOR UNKNOWN INDICATION
     Dosage: 4 MG, TID
  11. XANAX [Concomitant]
     Indication: PRODUCT USED FOR UNKNOWN INDICATION
     Dosage: 2 MG, TID
  12. PHENERGAN HCL [Concomitant]
     Indication: PRODUCT USED FOR UNKNOWN INDICATION
     Dosage: 0.25 MG, Q4H PRN

REACTIONS (4)
  - SURGERY [None]
  - INFECTION [None]
  - ARTHROSCOPIC SURGERY [None]
  - KNEE ARTHROPLASTY [None]
